FAERS Safety Report 9113593 (Version 1)
Quarter: 2013Q1

REPORT INFORMATION
  Report Type: Spontaneous
  Country: DK (occurrence: DK)
  Receive Date: 20130208
  Receipt Date: 20130208
  Transmission Date: 20140127
  Serious: Yes (Hospitalization)
  Sender: FDA-Public Use
  Company Number: DK-ASTRAZENECA-2013SE02505

PATIENT
  Sex: 0

DRUGS (1)
  1. SYMBICORT TURBUHALER [Suspect]
     Dosage: 160/4.5 MCG, FREQUENCY UNKNOWN
     Route: 055

REACTIONS (1)
  - Dyspnoea [Unknown]
